FAERS Safety Report 6021588-3 (Version None)
Quarter: 2008Q4

REPORT INFORMATION
  Report Type: 
  Country: None (occurrence: None)
  Receive Date: 20081229
  Receipt Date: 20081222
  Transmission Date: 20090506
  Serious: Yes (Death, Hospitalization)
  Sender: FDA-Public Use
  Company Number: PHHY2008JP26135

PATIENT
  Sex: Male

DRUGS (5)
  1. ICL670A ICL+DISTAB [Suspect]
     Indication: IRON OVERLOAD
     Dosage: 500 MG/DAY
     Route: 048
     Dates: start: 20080724, end: 20080820
  2. ICL670A ICL+DISTAB [Suspect]
     Indication: MYELODYSPLASTIC SYNDROME
  3. PRIMOBOLAN [Concomitant]
     Indication: IRON OVERLOAD
     Dosage: 15 MG
     Route: 048
     Dates: start: 20080215, end: 20080807
  4. GLAKAY [Concomitant]
     Indication: IRON OVERLOAD
     Dosage: UNK
     Dates: start: 20080215, end: 20080820
  5. CRAVIT [Concomitant]
     Indication: PROPHYLAXIS
     Dosage: 300 MG
     Route: 048
     Dates: start: 20000217, end: 20080820

REACTIONS (4)
  - DISEASE PROGRESSION [None]
  - INFECTION [None]
  - PANCYTOPENIA [None]
  - PNEUMONIA [None]
